FAERS Safety Report 15322199 (Version 2)
Quarter: 2018Q4

REPORT INFORMATION
  Report Type: Spontaneous
  Country: US (occurrence: US)
  Receive Date: 20180827
  Receipt Date: 20181019
  Transmission Date: 20190204
  Serious: Yes (Disabling, Other)
  Sender: FDA-Public Use
  Company Number: US-BIOMARINAP-US-2018-119554

PATIENT
  Sex: Female

DRUGS (1)
  1. PALYNZIQ [Suspect]
     Active Substance: PEGVALIASE-PQPZ
     Indication: PHENYLKETONURIA
     Dosage: 20 MILLIGRAM, QD
     Route: 058

REACTIONS (3)
  - Psychotic disorder [Recovered/Resolved]
  - Hallucination [Not Recovered/Not Resolved]
  - Anxiety [Not Recovered/Not Resolved]
